FAERS Safety Report 6639718-9 (Version None)
Quarter: 2010Q1

REPORT INFORMATION
  Report Type: 
  Country: None (occurrence: None)
  Receive Date: 20100318
  Receipt Date: 20100305
  Transmission Date: 20100710
  Serious: Yes (Hospitalization)
  Sender: FDA-Public Use
  Company Number: PHHY2010GB03640

PATIENT
  Sex: Male

DRUGS (2)
  1. CLOZARIL [Suspect]
     Indication: SCHIZOPHRENIA
     Dosage: UNK
     Dates: start: 19921002, end: 20100106
  2. VALPROATE SODIUM [Concomitant]
     Indication: EPILEPSY

REACTIONS (2)
  - CARDIAC ARREST [None]
  - GASTROINTESTINAL HAEMORRHAGE [None]
